FAERS Safety Report 12364635 (Version 1)
Quarter: 2016Q2

REPORT INFORMATION
  Report Type: Spontaneous
  Country: GB (occurrence: GB)
  Receive Date: 20160512
  Receipt Date: 20160512
  Transmission Date: 20160815
  Serious: Yes (Other)
  Sender: FDA-Public Use
  Company Number: GB-TEVA-658637ISR

PATIENT
  Age: 73 Year
  Sex: Male

DRUGS (4)
  1. LOSARTAN. [Concomitant]
     Active Substance: LOSARTAN
     Route: 065
  2. LEVETIRACETAM. [Suspect]
     Active Substance: LEVETIRACETAM
     Indication: EPILEPSY
     Route: 065
  3. GLICLAZIDE [Concomitant]
     Active Substance: GLICLAZIDE
     Route: 065
  4. ASPIRIN. [Concomitant]
     Active Substance: ASPIRIN
     Route: 065

REACTIONS (2)
  - Tubulointerstitial nephritis [Recovered/Resolved]
  - Acute kidney injury [Recovered/Resolved]
